FAERS Safety Report 12434928 (Version 1)
Quarter: 2016Q2

REPORT INFORMATION
  Report Type: Spontaneous
  Country: US (occurrence: US)
  Receive Date: 20160603
  Receipt Date: 20160603
  Transmission Date: 20160815
  Serious: No
  Sender: FDA-Public Use
  Company Number: US-ROCHE-1598395

PATIENT
  Sex: Female

DRUGS (4)
  1. KLONOPIN [Suspect]
     Active Substance: CLONAZEPAM
     Indication: DEPRESSION
  2. VISTARIL [Concomitant]
     Active Substance: HYDROXYZINE PAMOATE
  3. KLONOPIN [Suspect]
     Active Substance: CLONAZEPAM
     Indication: ANXIETY
     Dosage: 0.25 TID (AM, 6PM, AND 10PM)
     Route: 065
     Dates: start: 201412
  4. ZOLOFT [Concomitant]
     Active Substance: SERTRALINE HYDROCHLORIDE
     Dosage: 0.25 ONCE DAILY (AM)
     Route: 065
     Dates: start: 201412

REACTIONS (7)
  - Fatigue [Not Recovered/Not Resolved]
  - Amnesia [Unknown]
  - Gait disturbance [Unknown]
  - Drug ineffective [Unknown]
  - Coordination abnormal [Unknown]
  - Dependence [Unknown]
  - Intentional product misuse [Unknown]
